FAERS Safety Report 22075781 (Version 1)
Quarter: 2023Q1

REPORT INFORMATION
  Report Type: Spontaneous
  Country: US (occurrence: US)
  Receive Date: 20230308
  Receipt Date: 20230308
  Transmission Date: 20230417
  Serious: No
  Sender: FDA-Public Use
  Company Number: US-KARYOPHARM-2023KPT000261

PATIENT

DRUGS (2)
  1. XPOVIO [Suspect]
     Active Substance: SELINEXOR
     Indication: Plasma cell myeloma
     Dosage: 60 MG, WEEKLY
     Route: 048
     Dates: start: 20221228, end: 20230111
  2. OLANZAPINE [Concomitant]
     Active Substance: OLANZAPINE

REACTIONS (3)
  - Diarrhoea [Unknown]
  - Nausea [Unknown]
  - Fatigue [Not Recovered/Not Resolved]

NARRATIVE: CASE EVENT DATE: 20230101
